FAERS Safety Report 11722422 (Version 1)
Quarter: 2015Q4

REPORT INFORMATION
  Report Type: Spontaneous
  Country: US (occurrence: US)
  Receive Date: 20151111
  Receipt Date: 20151111
  Transmission Date: 20160304
  Serious: Yes (Life-Threatening, Hospitalization, Other)
  Sender: FDA-Public Use
  Company Number: US-WATSON-2015-20034

PATIENT
  Age: 20 Year
  Sex: Male

DRUGS (3)
  1. CIDOFOVIR. [Concomitant]
     Active Substance: CIDOFOVIR
     Indication: ADENOVIRAL HAEMORRHAGIC CYSTITIS
     Dosage: UNK
     Route: 042
  2. TACROLIMUS (WATSON LABORATORIES) [Suspect]
     Active Substance: TACROLIMUS
     Indication: GRAFT VERSUS HOST DISEASE IN SKIN
     Dosage: UNK
     Route: 065
  3. PREDNISONE. [Concomitant]
     Active Substance: PREDNISONE
     Indication: GRAFT VERSUS HOST DISEASE IN SKIN
     Dosage: UNK
     Route: 065

REACTIONS (2)
  - Posterior reversible encephalopathy syndrome [Recovering/Resolving]
  - Immunosuppressant drug level increased [Unknown]
